FAERS Safety Report 4969533-3 (Version None)
Quarter: 2006Q2

REPORT INFORMATION
  Report Type: 
  Country: None (occurrence: None)
  Receive Date: 20060406
  Receipt Date: 20060324
  Transmission Date: 20061013
  Serious: Yes (Disabling)
  Sender: FDA-Public Use
  Company Number: HQWYE543827MAR06

PATIENT
  Age: 55 Year
  Sex: Female

DRUGS (7)
  1. EFFEXOR XR [Suspect]
     Indication: DEPRESSION
     Dosage: UNKNOWN STARTING DOSE - TITRATED UP TO 300 MG DAILY; ORAL, 300 MG 1X PER 1 DAY, ORAL; (SEE IMAGE)
     Route: 048
     Dates: end: 20051201
  2. EFFEXOR XR [Suspect]
     Indication: DEPRESSION
     Dosage: UNKNOWN STARTING DOSE - TITRATED UP TO 300 MG DAILY; ORAL, 300 MG 1X PER 1 DAY, ORAL; (SEE IMAGE)
     Route: 048
     Dates: start: 20021201
  3. EFFEXOR XR [Suspect]
     Indication: DEPRESSION
     Dosage: UNKNOWN STARTING DOSE - TITRATED UP TO 300 MG DAILY; ORAL, 300 MG 1X PER 1 DAY, ORAL; (SEE IMAGE)
     Route: 048
     Dates: start: 20030101
  4. LIPITOR [Concomitant]
  5. SYNTHROID [Concomitant]
  6. PROTONIX [Concomitant]
  7. XANAX [Concomitant]

REACTIONS (12)
  - ACTIVITIES OF DAILY LIVING IMPAIRED [None]
  - CARDIOVASCULAR DISORDER [None]
  - CLUSTER HEADACHE [None]
  - DRUG WITHDRAWAL SYNDROME [None]
  - GROWTH HORMONE DEFICIENCY [None]
  - HOT FLUSH [None]
  - HYPERTENSION [None]
  - IMPAIRED WORK ABILITY [None]
  - PITUITARY TUMOUR BENIGN [None]
  - SPEECH DISORDER [None]
  - THINKING ABNORMAL [None]
  - TINNITUS [None]
